FAERS Safety Report 5777728-4 (Version None)
Quarter: 2008Q2

REPORT INFORMATION
  Report Type: 
  Country: None (occurrence: None)
  Receive Date: 20080601
  Receipt Date: 20071231
  Transmission Date: 20081010
  Serious: No
  Sender: FDA-Public Use
  Company Number: US200801000162

PATIENT
  Age: 66 Year
  Sex: Female

DRUGS (9)
  1. BYETTA [Suspect]
     Indication: TYPE 2 DIABETES MELLITUS
     Dosage: 5 UG, EACH EVENING, SUBCUTANEOUS
     Route: 058
     Dates: start: 20071201
  2. METFORMIN HCL [Concomitant]
  3. AMARYL [Concomitant]
  4. DIOVAN (HYDROCHLOROTHIAZIDE, VALSARTAN) [Concomitant]
  5. LASIX [Concomitant]
  6. ALDACTONE [Concomitant]
  7. SYNTHROID [Concomitant]
  8. ACTOS [Concomitant]
  9. ANTI-DIABETICS [Concomitant]

REACTIONS (9)
  - ARTHRALGIA [None]
  - DIZZINESS [None]
  - FALL [None]
  - GAIT DISTURBANCE [None]
  - INSOMNIA [None]
  - MALAISE [None]
  - MEMORY IMPAIRMENT [None]
  - NAUSEA [None]
  - VOMITING [None]
